FAERS Safety Report 11719494 (Version 1)
Quarter: 2015Q4

REPORT INFORMATION
  Report Type: Report from Study
  Country: US (occurrence: US)
  Receive Date: 20151110
  Receipt Date: 20151110
  Transmission Date: 20160304
  Serious: Yes (Hospitalization)
  Sender: FDA-Public Use
  Company Number: US-ACTELION-A-US2015-112884

PATIENT
  Age: 44 Year
  Sex: Male

DRUGS (2)
  1. VELETRI [Suspect]
     Active Substance: EPOPROSTENOL
     Indication: PULMONARY ARTERIAL HYPERTENSION
     Dosage: 18 NG/KG, PER MIN
     Route: 042
     Dates: start: 20150127
  2. VELETRI [Suspect]
     Active Substance: EPOPROSTENOL
     Dosage: 19 NG/KG, PER MIN
     Route: 041
     Dates: start: 20150203

REACTIONS (19)
  - Anxiety [Unknown]
  - Fatigue [Unknown]
  - Back pain [Unknown]
  - Diarrhoea [Recovered/Resolved]
  - Pain [Unknown]
  - Periorbital oedema [Unknown]
  - Nausea [Unknown]
  - Vomiting [Unknown]
  - Pain in jaw [Unknown]
  - Flushing [Unknown]
  - Hyperaesthesia [Unknown]
  - Rhinorrhoea [Unknown]
  - Headache [Unknown]
  - Feeling hot [Unknown]
  - Dizziness [Unknown]
  - Malaise [Recovering/Resolving]
  - Toxicity to various agents [Recovering/Resolving]
  - Pain in extremity [Unknown]
  - Chills [Unknown]
